FAERS Safety Report 8379323-X (Version None)
Quarter: 2012Q2

REPORT INFORMATION
  Report Type: 
  Country: None (occurrence: None)
  Receive Date: 20120523
  Receipt Date: 20120518
  Transmission Date: 20120825
  Serious: Yes (Other)
  Sender: FDA-Public Use
  Company Number: PHHY2012DE043565

PATIENT
  Sex: Male
  Weight: 74 kg

DRUGS (1)
  1. TOBI [Suspect]
     Indication: PSEUDOMONAS INFECTION
     Dosage: 224 UG, UNK
     Dates: start: 20120412, end: 20120430

REACTIONS (6)
  - HYPOVENTILATION [None]
  - LUNG DISORDER [None]
  - HYPOXIA [None]
  - COUGH [None]
  - DYSPNOEA [None]
  - OBSTRUCTIVE AIRWAYS DISORDER [None]
